FAERS Safety Report 4996796-0 (Version None)
Quarter: 2006Q2

REPORT INFORMATION
  Report Type: 
  Country: None (occurrence: None)
  Receive Date: 20060505
  Receipt Date: 20060425
  Transmission Date: 20061013
  Serious: Yes (Other)
  Sender: FDA-Public Use
  Company Number: 2006042932

PATIENT
  Age: 67 Year
  Sex: Female

DRUGS (4)
  1. ZYVOX [Suspect]
     Indication: LUNG INFECTION
     Dosage: 1200 MG (600 MG, 2 IN 1 D); 600 MG (300 MG, 2 IN 1 D)
     Dates: start: 20051231, end: 20060301
  2. OTHER RESPIRATORY SYSTEM PRODUCTS (OTHER RESPIRATORY SYSTEM PRODUCTS) [Concomitant]
  3. PAXIL [Concomitant]
  4. AZITHROMYCIN [Concomitant]

REACTIONS (7)
  - ANOREXIA [None]
  - FALL [None]
  - HYPOAESTHESIA [None]
  - NAUSEA [None]
  - PAIN IN EXTREMITY [None]
  - PARAESTHESIA [None]
  - WEIGHT DECREASED [None]
